FAERS Safety Report 6371191-0 (Version None)
Quarter: 2009Q3

REPORT INFORMATION
  Report Type: 
  Country: None (occurrence: None)
  Receive Date: 20090923
  Receipt Date: 20071212
  Transmission Date: 20100115
  Serious: Yes (Hospitalization, Other)
  Sender: FDA-Public Use
  Company Number: US-ASTRAZENECA-2006UW27633

PATIENT
  Age: 21547 Day
  Sex: Female
  Weight: 64.4 kg

DRUGS (19)
  1. SEROQUEL [Suspect]
     Indication: DEPRESSION
     Dosage: 25-100 MG
     Route: 048
     Dates: start: 20000306
  2. SEROQUEL [Suspect]
     Indication: SLEEP DISORDER
     Dosage: 25-100 MG
     Route: 048
     Dates: start: 20000306
  3. SEROQUEL [Suspect]
     Route: 048
     Dates: start: 20040101
  4. SEROQUEL [Suspect]
     Route: 048
     Dates: start: 20040101
  5. FLURAZEPAM [Concomitant]
  6. ZOVIRAX [Concomitant]
  7. RANITIDINE [Concomitant]
  8. IBUPROFEN [Concomitant]
  9. CYPROHEPTADINE [Concomitant]
  10. ALBUTEROL [Concomitant]
  11. TRAZODONE [Concomitant]
  12. TEMAZEPAM [Concomitant]
  13. ZERIT [Concomitant]
  14. NEURONTIN [Concomitant]
  15. COMBIVIR [Concomitant]
  16. VIRAMUNE [Concomitant]
  17. VIDEX [Concomitant]
  18. PEPCIDE [Concomitant]
  19. AVELOX [Concomitant]

REACTIONS (2)
  - PANCREATITIS [None]
  - PANCREATITIS ACUTE [None]
